FAERS Safety Report 6794034-X (Version None)
Quarter: 2010Q2

REPORT INFORMATION
  Report Type: 
  Country: None (occurrence: None)
  Receive Date: 20100624
  Receipt Date: 20070418
  Transmission Date: 20101027
  Serious: No
  Sender: FDA-Public Use
  Company Number: US-PFIZER INC-ENC200700060

PATIENT
  Age: 51 Year
  Sex: Female

DRUGS (8)
  1. ARGATROBAN [Suspect]
     Indication: HEPARIN-INDUCED THROMBOCYTOPENIA
     Dosage: VARYING DOSAGES
     Route: 042
     Dates: start: 20070411
  2. AMIODARONE HCL [Concomitant]
  3. NICOTINIC ACID [Concomitant]
  4. ACETYLSALICYLIC ACID [Concomitant]
  5. CLOPIDOGREL [Concomitant]
  6. SIMVASTATIN [Concomitant]
  7. SOTALOL HCL [Concomitant]
  8. MIDODRINE HYDROCHLORIDE [Concomitant]

REACTIONS (1)
  - COAGULATION TIME ABNORMAL [None]
